FAERS Safety Report 8772880 (Version 1)
Quarter: 2012Q4

REPORT INFORMATION
  Report Type: 
  Country: US (occurrence: US)
  Receive Date: 20120907
  Receipt Date: 20120907
  Transmission Date: 20130627
  Serious: Yes (Other)
  Sender: FDA-Public Use
  Company Number: US-PERRIGO-12US007698

PATIENT
  Age: 26 Year
  Sex: Female

DRUGS (1)
  1. ACETAMINOPHEN 650MG ER 544 [Suspect]
     Indication: PRODUCT USED FOR UNKNOWN INDICATION
     Dosage: Unk, Unk
     Route: 048

REACTIONS (5)
  - Acute hepatic failure [Unknown]
  - Hepatitis [Unknown]
  - Overdose [Unknown]
  - Coagulopathy [Unknown]
  - Transaminases increased [Unknown]
